FAERS Safety Report 6274761-3 (Version None)
Quarter: 2009Q3

REPORT INFORMATION
  Report Type: 
  Country: None (occurrence: None)
  Receive Date: 20090721
  Receipt Date: 20070912
  Transmission Date: 20100115
  Serious: Yes (Other)
  Sender: FDA-Public Use
  Company Number: US-ASTRAZENECA-2007UW09613

PATIENT
  Age: 568 Month
  Sex: Male

DRUGS (14)
  1. SEROQUEL [Suspect]
     Indication: SLEEP DISORDER
     Dosage: 100
     Dates: start: 20020626, end: 20060801
  2. SEROQUEL [Suspect]
     Route: 048
     Dates: start: 20051206
  3. SEROQUEL [Suspect]
     Dosage: 100 - 800 MG
     Route: 048
  4. RISPERDAL [Suspect]
     Dosage: 1 MG - 4 MG
     Route: 048
     Dates: start: 20051204
  5. METFORMIN HCL [Concomitant]
     Indication: TYPE 2 DIABETES MELLITUS
     Dosage: 500 MG EVERY MORNING, 1000 MG TWO TIMES A DAY
     Dates: start: 20051205
  6. LEXAPRO [Concomitant]
     Dosage: 10 MG, 20 MG
     Route: 048
     Dates: start: 20051204
  7. NOVOLIN [Concomitant]
     Dosage: 70 / 30 27 UNITS SQ IN AM AND 30 UNITS SQ AT 1800
     Dates: start: 20051205
  8. PROZAC [Concomitant]
     Dates: start: 20051121
  9. COGENTIN [Concomitant]
     Dates: start: 20051121
  10. CLONIDINE [Concomitant]
     Dates: start: 20051121, end: 20051205
  11. HUMULIN R [Concomitant]
     Indication: TYPE 1 DIABETES MELLITUS
     Dosage: 70/30 40 UNITS IN THE AM, 37 UNITS IN THE EVENING
     Dates: start: 20051121
  12. LORAZEPAM [Concomitant]
     Dates: start: 20051204
  13. GLYBURIDE [Concomitant]
     Dates: start: 20051205
  14. AMBIEN [Concomitant]
     Dates: start: 20051205

REACTIONS (5)
  - DIABETES MELLITUS INADEQUATE CONTROL [None]
  - DIABETIC NEUROPATHY [None]
  - PANCREATITIS ACUTE [None]
  - TYPE 1 DIABETES MELLITUS [None]
  - TYPE 2 DIABETES MELLITUS [None]
